FAERS Safety Report 6981421-X (Version None)
Quarter: 2010Q3

REPORT INFORMATION
  Report Type: 
  Country: None (occurrence: None)
  Receive Date: 20100914
  Receipt Date: 20090904
  Transmission Date: 20110219
  Serious: No
  Sender: FDA-Public Use
  Company Number: US-BRISTOL-MYERS SQUIBB COMPANY-14768246

PATIENT
  Sex: Female

DRUGS (1)
  1. MEGACE [Suspect]
     Dosage: USP

REACTIONS (2)
  - DRUG INTOLERANCE [None]
  - WEIGHT DECREASED [None]
